FAERS Safety Report 16166960 (Version 1)
Quarter: 2019Q2

REPORT INFORMATION
  Report Type: Spontaneous
  Country: US (occurrence: US)
  Receive Date: 20190408
  Receipt Date: 20190408
  Transmission Date: 20190711
  Serious: Yes (Other)
  Sender: FDA-Public Use
  Company Number: US-SA-2019SA093814

PATIENT
  Sex: Female

DRUGS (1)
  1. AUBAGIO [Suspect]
     Active Substance: TERIFLUNOMIDE
     Dosage: 14 MG, QD
     Route: 064
     Dates: start: 201802, end: 20180402

REACTIONS (3)
  - Polydactyly [Unknown]
  - Foetal exposure during pregnancy [Unknown]
  - Cardiac septal defect [Recovering/Resolving]
